FAERS Safety Report 7357099-2 (Version None)
Quarter: 2011Q1

REPORT INFORMATION
  Report Type: 
  Country: None (occurrence: None)
  Receive Date: 20110317
  Receipt Date: 20100921
  Transmission Date: 20110831
  Serious: Yes (Hospitalization, Other)
  Sender: FDA-Public Use
  Company Number: US-BAYER-201021160NA

PATIENT
  Sex: Female
  Weight: 50.34 kg

DRUGS (1)
  1. YASMIN [Suspect]
     Indication: CONTRACEPTION
     Dosage: AS USED DOSE: UNK
     Route: 048
     Dates: start: 20050901, end: 20060301

REACTIONS (9)
  - CHOLECYSTITIS [None]
  - ARTHRALGIA [None]
  - MENTAL DISORDER [None]
  - ILEITIS [None]
  - RASH [None]
  - MYALGIA [None]
  - ABSCESS [None]
  - CHOLELITHIASIS [None]
  - ASCITES [None]
